FAERS Safety Report 8287418-4 (Version None)
Quarter: 2012Q2

REPORT INFORMATION
  Report Type: 
  Country: None (occurrence: None)
  Receive Date: 20120416
  Receipt Date: 20120402
  Transmission Date: 20120825
  Serious: Yes (Life-Threatening)
  Sender: FDA-Public Use
  Company Number: IN-COVIDIEN/TYCO HEALTHCARE/MALLINCKRODT-T201201406

PATIENT
  Age: 70 Year
  Sex: Male
  Weight: 58 kg

DRUGS (14)
  1. FENTANYL CITRATE [Suspect]
     Indication: ANAESTHESIA
     Dosage: 2 ?G/KG, SINGLE
     Route: 042
     Dates: start: 20110101, end: 20110101
  2. MIDAZOLAM [Concomitant]
     Indication: ANAESTHESIA
     Dosage: 1 MG
     Route: 042
     Dates: start: 20110101, end: 20110101
  3. PROPOFOL [Suspect]
     Dosage: 10 MG/KG, HR
     Route: 042
     Dates: start: 20110101, end: 20110101
  4. ROCURONIUM BROMIDE [Concomitant]
     Indication: ANAESTHESIA
     Dosage: 0.9 MG/KG, SINGLE
     Route: 042
     Dates: start: 20110101, end: 20110101
  5. ROCURONIUM BROMIDE [Concomitant]
     Dosage: 0.15 MG/KG, PRN
     Route: 042
     Dates: start: 20110101, end: 20110101
  6. ACE INHIBITORS [Concomitant]
     Indication: HYPERTENSION
     Dosage: UNK
  7. FENTANYL CITRATE [Suspect]
     Dosage: 1 ?G/KG, PRN
     Route: 042
     Dates: start: 20110101, end: 20110101
  8. GLYCOPYRROLATE                     /00196202/ [Concomitant]
     Indication: ANAESTHESIA
     Dosage: 0.2 MG
     Route: 042
     Dates: start: 20110101, end: 20110101
  9. DEXMEDETOMODINE HYDROCHLORIDE [Suspect]
     Indication: ANAESTHESIA
     Dosage: 1 UG/KG, BOLUS OVER 10 MIN
     Route: 042
     Dates: start: 20110101, end: 20110101
  10. DEXMEDETOMODINE HYDROCHLORIDE [Suspect]
     Dosage: 0.5 ?G/KG, HR
     Route: 042
     Dates: start: 20110101, end: 20110101
  11. ORAL BLOOD GLUCOSE LOWERING DRUGS [Concomitant]
     Indication: BLOOD GLUCOSE
     Dosage: UNK
     Route: 048
  12. NITROUS OXIDE W/ OXYGEN [Concomitant]
     Indication: ANAESTHESIA
     Dosage: UNK
     Dates: start: 20110101, end: 20110101
  13. PROPOFOL [Suspect]
     Indication: ANAESTHESIA
     Dosage: 2 MG/KG, SINGLE
     Route: 042
     Dates: start: 20110101, end: 20110101
  14. ANTI-ANGINAL [Concomitant]
     Indication: ANGINA PECTORIS

REACTIONS (2)
  - DRUG INTERACTION [None]
  - CARDIAC ARREST [None]
